FAERS Safety Report 9480600 (Version 1)
Quarter: 2013Q3

REPORT INFORMATION
  Report Type: Spontaneous
  Country: US (occurrence: US)
  Receive Date: 20130828
  Receipt Date: 20130828
  Transmission Date: 20140515
  Serious: Yes (Hospitalization, Other)
  Sender: FDA-Public Use
  Company Number: US-AMGEN-KDL107962

PATIENT
  Age: 64 Year
  Sex: Female

DRUGS (2)
  1. ENBREL [Suspect]
     Indication: RHEUMATOID ARTHRITIS
     Dosage: 25 MG, 2 TIMES/WK
     Route: 058
     Dates: start: 20030213, end: 20040815
  2. METHOTREXATE [Concomitant]
     Dosage: 2.5 MG, UNK
     Route: 048
     Dates: start: 19940201

REACTIONS (12)
  - Paralysis [Unknown]
  - Abasia [Unknown]
  - Asthenia [Unknown]
  - Tendonitis [Unknown]
  - Bacteraemia [Unknown]
  - Hepatic infection [Unknown]
  - Cholecystitis infective [Unknown]
  - Urinary tract infection [Unknown]
  - Bursitis [Unknown]
  - Dizziness [Unknown]
  - Pyrexia [Unknown]
  - Pain [Unknown]
